FAERS Safety Report 10175505 (Version 5)
Quarter: 2017Q2

REPORT INFORMATION
  Report Type: Report from Study
  Country: US (occurrence: US)
  Receive Date: 20140516
  Receipt Date: 20170606
  Transmission Date: 20170829
  Serious: Yes (Other)
  Sender: FDA-Public Use
  Company Number: US-ROCHE-1400958

PATIENT
  Age: 16 Year
  Sex: Female

DRUGS (2)
  1. BEVACIZUMAB [Suspect]
     Active Substance: BEVACIZUMAB
     Indication: RETINOPATHY CONGENITAL
  2. BEVACIZUMAB [Suspect]
     Active Substance: BEVACIZUMAB
     Indication: RETINAL DISORDER
     Dosage: 1.25 MG/0.05 ML OF BEVACIZUMAB
     Route: 050

REACTIONS (2)
  - Off label use [Unknown]
  - Idiopathic intracranial hypertension [Unknown]
